FAERS Safety Report 15710015 (Version 3)
Quarter: 2019Q1

REPORT INFORMATION
  Report Type: Spontaneous
  Country: PT (occurrence: PT)
  Receive Date: 20181211
  Receipt Date: 20190131
  Transmission Date: 20190417
  Serious: Yes (Other)
  Sender: FDA-Public Use
  Company Number: PHHY2015PT008840

PATIENT
  Age: 43 Year
  Sex: Female

DRUGS (14)
  1. BUDESONIDE. [Interacting]
     Active Substance: BUDESONIDE
     Indication: RHINITIS ALLERGIC
     Dosage: 200 UG, QD
     Route: 006
  2. RITONAVIR. [Interacting]
     Active Substance: RITONAVIR
     Indication: HIV INFECTION
  3. LAMIVUDINE. [Concomitant]
     Active Substance: LAMIVUDINE
     Indication: HIV INFECTION
  4. PREDNISOLONE. [Concomitant]
     Active Substance: PREDNISOLONE
     Indication: PRODUCT USED FOR UNKNOWN INDICATION
     Dosage: UNK UKN, UNKNOWN
     Route: 048
  5. RALTEGRAVIR. [Concomitant]
     Active Substance: RALTEGRAVIR
     Indication: HEPATITIS C
     Dosage: UNK UKN, UNKNOWN
     Route: 065
  6. RALTEGRAVIR. [Concomitant]
     Active Substance: RALTEGRAVIR
     Indication: HIV INFECTION
  7. DARUNAVIR [Concomitant]
     Active Substance: DARUNAVIR
     Indication: HEPATITIS C
     Dosage: UNK UKN, UNKNOWN
     Route: 065
  8. ATAZANAVIR. [Concomitant]
     Active Substance: ATAZANAVIR
     Indication: HEPATITIS C
     Dosage: UNK UKN, UNKNOWN
     Route: 065
  9. ATAZANAVIR. [Concomitant]
     Active Substance: ATAZANAVIR
     Indication: HIV INFECTION
  10. BUDESONIDE. [Interacting]
     Active Substance: BUDESONIDE
     Dosage: LOW DOSE THERAPY
     Route: 045
  11. RITONAVIR. [Interacting]
     Active Substance: RITONAVIR
     Indication: HEPATITIS C
     Dosage: 100 MG, QD
     Route: 065
  12. BETAMETHASONE. [Suspect]
     Active Substance: BETAMETHASONE
     Indication: SKIN FRAGILITY
     Dosage: UNK UNK, UNKNOWN
     Route: 061
  13. LAMIVUDINE. [Concomitant]
     Active Substance: LAMIVUDINE
     Indication: HEPATITIS C
     Dosage: UNK UKN, UNKNOWN
     Route: 065
  14. DARUNAVIR [Concomitant]
     Active Substance: DARUNAVIR
     Indication: HIV INFECTION

REACTIONS (8)
  - Cushing^s syndrome [Recovering/Resolving]
  - Muscular weakness [Unknown]
  - Cushingoid [Unknown]
  - Skin striae [Unknown]
  - Skin fragility [Unknown]
  - Asthenia [Unknown]
  - Insomnia [Unknown]
  - Drug interaction [Recovering/Resolving]

NARRATIVE: CASE EVENT DATE: 2012
